FAERS Safety Report 17536281 (Version 2)
Quarter: 2020Q2

REPORT INFORMATION
  Report Type: Spontaneous
  Country: ES (occurrence: ES)
  Receive Date: 20200313
  Receipt Date: 20200410
  Transmission Date: 20200713
  Serious: Yes (Other)
  Sender: FDA-Public Use
  Company Number: ES-ASTRAZENECA-2020SE33853

PATIENT
  Age: 61 Year
  Sex: Male
  Weight: 81 kg

DRUGS (7)
  1. PHENYTOIN. [Concomitant]
     Active Substance: PHENYTOIN
  2. DURVALUMAB. [Suspect]
     Active Substance: DURVALUMAB
     Indication: LUNG ADENOCARCINOMA
     Dosage: 10 MG/Q14D/KG
     Route: 042
     Dates: start: 20190722, end: 20200121
  3. TINZAPARIN [Concomitant]
     Active Substance: TINZAPARIN
  4. LEVOTHYROXINE. [Concomitant]
     Active Substance: LEVOTHYROXINE
  5. OMEPRAZOLE. [Concomitant]
     Active Substance: OMEPRAZOLE
  6. CYANOCOBALAMIN. [Concomitant]
     Active Substance: CYANOCOBALAMIN
  7. TRAZODONE [Concomitant]
     Active Substance: TRAZODONE HYDROCHLORIDE

REACTIONS (2)
  - Thrombocytopenia [Not Recovered/Not Resolved]
  - Microcytic anaemia [Unknown]

NARRATIVE: CASE EVENT DATE: 20191210
